FAERS Safety Report 16464407 (Version 1)
Quarter: 2019Q2

REPORT INFORMATION
  Report Type: Report from Study
  Country: CA (occurrence: CA)
  Receive Date: 20190621
  Receipt Date: 20190621
  Transmission Date: 20190711
  Serious: Yes (Other)
  Sender: FDA-Public Use
  Company Number: CA-EMD SERONO-E2B_90052150

PATIENT
  Sex: Male

DRUGS (11)
  1. MAVENCLAD [Suspect]
     Active Substance: CLADRIBINE
     Indication: RELAPSING-REMITTING MULTIPLE SCLEROSIS
     Dosage: FIRST WEEK THERAPY: (20 MG FOR THREE DAYS AND 10MG FOR 2 DAYS)
     Route: 048
     Dates: start: 20180624
  2. VITAMIN B12 [Concomitant]
     Active Substance: CYANOCOBALAMIN
     Indication: VITAMIN B12 DEFICIENCY
  3. VALSARTAN. [Concomitant]
     Active Substance: VALSARTAN
     Indication: PRODUCT USED FOR UNKNOWN INDICATION
     Route: 048
  4. NOVO-FLUVOXAMINE [Concomitant]
     Indication: DEPRESSION
  5. LUVOX [Concomitant]
     Active Substance: FLUVOXAMINE MALEATE
     Indication: PRODUCT USED FOR UNKNOWN INDICATION
  6. MAVENCLAD [Suspect]
     Active Substance: CLADRIBINE
     Dosage: SECOND WEEK THERAPY:  (20 MG FOR TWO DAYS AND THEN 10MG FOR 3 DAYS)
     Route: 048
     Dates: start: 20180722, end: 20180726
  7. VITAMIN D                          /00107901/ [Concomitant]
     Active Substance: ERGOCALCIFEROL
     Indication: PRODUCT USED FOR UNKNOWN INDICATION
  8. GABAPENTIN. [Suspect]
     Active Substance: GABAPENTIN
     Indication: TINNITUS
  9. WELLBUTRIN [Concomitant]
     Active Substance: BUPROPION HYDROCHLORIDE
     Indication: DEPRESSION
     Dosage: XL
  10. HYDROCHLOROTHIAZIDE. [Concomitant]
     Active Substance: HYDROCHLOROTHIAZIDE
     Indication: PRODUCT USED FOR UNKNOWN INDICATION
     Route: 048
  11. OMNARIS [Concomitant]
     Active Substance: CICLESONIDE
     Indication: TINNITUS

REACTIONS (10)
  - Neutrophil count decreased [Recovered/Resolved]
  - Depression [Unknown]
  - Haemangioma of spleen [Unknown]
  - Renal cyst [Unknown]
  - Fatigue [Not Recovered/Not Resolved]
  - Gastrointestinal wall thickening [Unknown]
  - Lymphopenia [Recovering/Resolving]
  - Spleen disorder [Unknown]
  - Alopecia [Not Recovered/Not Resolved]
  - White blood cell count decreased [Recovered/Resolved]
